FAERS Safety Report 25755901 (Version 2)
Quarter: 2025Q3

REPORT INFORMATION
  Report Type: Spontaneous
  Country: US (occurrence: US)
  Receive Date: 20250903
  Receipt Date: 20250905
  Transmission Date: 20251021
  Serious: Yes (Life-Threatening, Other)
  Sender: PFIZER
  Company Number: US-PFIZER INC-PV202500105287

PATIENT
  Age: 35 Year
  Sex: Female

DRUGS (2)
  1. LABETALOL HYDROCHLORIDE [Suspect]
     Active Substance: LABETALOL HYDROCHLORIDE
     Indication: Hypertensive crisis
     Dosage: 100 MG, 2X/DAY
  2. LABETALOL HYDROCHLORIDE [Suspect]
     Active Substance: LABETALOL HYDROCHLORIDE
     Dosage: 200 MG, 3X/DAY

REACTIONS (2)
  - Drug ineffective [Unknown]
  - Maternal exposure during pregnancy [Unknown]
